FAERS Safety Report 10795932 (Version 1)
Quarter: 2015Q1

REPORT INFORMATION
  Report Type: Spontaneous
  Country: IT (occurrence: IT)
  Receive Date: 20150216
  Receipt Date: 20150216
  Transmission Date: 20150721
  Serious: Yes (Other)
  Sender: FDA-Public Use
  Company Number: IT-ROCHE-1538396

PATIENT
  Age: 58 Year
  Sex: Male
  Weight: 122 kg

DRUGS (2)
  1. AVASTIN [Suspect]
     Active Substance: BEVACIZUMAB
     Indication: NON-SMALL CELL LUNG CANCER
     Dosage: CONCENTRATE FOR SOLUTION FOR INTRAVENOUS INFUSION
     Route: 041
     Dates: start: 20140331
  2. GEMZAR [Concomitant]
     Active Substance: GEMCITABINE HYDROCHLORIDE
     Indication: NON-SMALL CELL LUNG CANCER
     Dosage: POWDER FOR SOLUTION FOR INTRAVENOUS INFUSION
     Route: 041

REACTIONS (4)
  - Rectal haemorrhage [Recovering/Resolving]
  - Asthenia [Recovering/Resolving]
  - Thrombocytopenia [Recovering/Resolving]
  - Vertigo [Recovering/Resolving]

NARRATIVE: CASE EVENT DATE: 20140929
